FAERS Safety Report 5430743-2 (Version None)
Quarter: 2007Q3

REPORT INFORMATION
  Report Type: 
  Country: None (occurrence: None)
  Receive Date: 20070830
  Receipt Date: 20061107
  Transmission Date: 20080115
  Serious: No
  Sender: FDA-Public Use
  Company Number: A0626583A

PATIENT
  Age: 27 Year
  Sex: Female

DRUGS (2)
  1. WELLBUTRIN XL [Suspect]
     Indication: DEPRESSION
     Dosage: 150MG PER DAY
     Route: 048
     Dates: start: 20061005
  2. THYROID TAB [Concomitant]

REACTIONS (3)
  - ADNEXA UTERI PAIN [None]
  - AMENORRHOEA [None]
  - METRORRHAGIA [None]
